FAERS Safety Report 10623443 (Version 1)
Quarter: 2014Q4

REPORT INFORMATION
  Report Type: Spontaneous
  Country: FR (occurrence: FR)
  Receive Date: 20141203
  Receipt Date: 20141203
  Transmission Date: 20150529
  Serious: Yes (Hospitalization)
  Sender: FDA-Public Use
  Company Number: FR-BRISTOL-MYERS SQUIBB COMPANY-21655014

PATIENT
  Age: 65 Year
  Sex: Male
  Weight: 150 kg

DRUGS (14)
  1. INEXIUM [Concomitant]
     Active Substance: ESOMEPRAZOLE
  2. TAHOR [Concomitant]
     Active Substance: ATORVASTATIN CALCIUM
  3. SPIRIVA [Concomitant]
     Active Substance: TIOTROPIUM BROMIDE MONOHYDRATE
  4. SERETIDE [Concomitant]
     Active Substance: FLUTICASONE FUROATE\SALMETEROL XINAFOATE
  5. BYETTA [Suspect]
     Active Substance: EXENATIDE
     Route: 058
     Dates: start: 2010, end: 201203
  6. EFIENT [Concomitant]
     Active Substance: PRASUGREL HYDROCHLORIDE
  7. METFORMINE BIOGARAN [Suspect]
     Active Substance: METFORMIN HYDROCHLORIDE
     Route: 048
     Dates: start: 2010
  8. TILDIEM [Concomitant]
     Active Substance: DILTIAZEM HYDROCHLORIDE
  9. LEVOTHYROX [Concomitant]
     Active Substance: LEVOTHYROXINE
  10. DIAMICRON [Suspect]
     Active Substance: GLICLAZIDE
     Route: 048
     Dates: start: 2010
  11. KARDEGIC [Concomitant]
     Active Substance: ASPIRIN LYSINE
  12. CORDARONE [Concomitant]
     Active Substance: AMIODARONE HYDROCHLORIDE
  13. MICARDIS [Concomitant]
     Active Substance: TELMISARTAN
  14. FLUOXETINE [Concomitant]
     Active Substance: FLUOXETINE\FLUOXETINE HYDROCHLORIDE

REACTIONS (1)
  - Adenocarcinoma pancreas [Not Recovered/Not Resolved]

NARRATIVE: CASE EVENT DATE: 201206
